FAERS Safety Report 6660724-2 (Version None)
Quarter: 2010Q1

REPORT INFORMATION
  Report Type: 
  Country: None (occurrence: None)
  Receive Date: 20100331
  Receipt Date: 20100323
  Transmission Date: 20100710
  Serious: Yes (Hospitalization)
  Sender: FDA-Public Use
  Company Number: BR-ASTRAZENECA-2010SE12848

PATIENT
  Age: 23281 Day
  Sex: Male

DRUGS (5)
  1. ROSUVASTATIN [Suspect]
     Indication: CORONARY ARTERY DISEASE
     Route: 048
     Dates: start: 20090114
  2. ACETYLSALICYLIC ACID [Concomitant]
     Indication: CORONARY ARTERY INSUFFICIENCY
     Route: 048
  3. CLORANA [Concomitant]
     Indication: HYPERTENSION
     Route: 048
     Dates: start: 20090124
  4. IBUPROFEN [Concomitant]
     Indication: MYALGIA
     Route: 048
     Dates: start: 20091209
  5. LOSARTAN POTASSIUM [Concomitant]
     Indication: HYPERTENSION
     Route: 048
     Dates: start: 20091209

REACTIONS (1)
  - SYNCOPE [None]
